FAERS Safety Report 6642083-4 (Version None)
Quarter: 2010Q1

REPORT INFORMATION
  Report Type: 
  Country: None (occurrence: None)
  Receive Date: 20100319
  Receipt Date: 20100316
  Transmission Date: 20100710
  Serious: Yes (Death, Hospitalization, Other)
  Sender: FDA-Public Use
  Company Number: PHHY2009CA37312

PATIENT
  Sex: Male

DRUGS (1)
  1. SANDOSTATIN LAR [Suspect]
     Indication: CARCINOID TUMOUR
     Dosage: 30 MG, QMO
     Route: 030
     Dates: start: 20080408

REACTIONS (7)
  - ASCITES [None]
  - BLOOD PRESSURE INCREASED [None]
  - DEATH [None]
  - HEART RATE IRREGULAR [None]
  - LOCALISED OEDEMA [None]
  - METASTASES TO LIVER [None]
  - OEDEMA PERIPHERAL [None]
